FAERS Safety Report 6434305-X (Version None)
Quarter: 2009Q4

REPORT INFORMATION
  Report Type: 
  Country: None (occurrence: None)
  Receive Date: 20091110
  Receipt Date: 20091102
  Transmission Date: 20100525
  Serious: Yes (Death)
  Sender: FDA-Public Use
  Company Number: GB-JNJFOC-20091101938

PATIENT
  Age: 83 Year
  Sex: Male

DRUGS (1)
  1. REOPRO [Suspect]
     Indication: THROMBOSIS
     Dates: start: 20091001

REACTIONS (1)
  - GASTROINTESTINAL HAEMORRHAGE [None]
